FAERS Safety Report 11828839 (Version 1)
Quarter: 2015Q4

REPORT INFORMATION
  Report Type: Spontaneous
  Country: US (occurrence: US)
  Receive Date: 20151211
  Receipt Date: 20151211
  Transmission Date: 20160305
  Serious: Yes (Other)
  Sender: FDA-Public Use
  Company Number: US-PFIZER INC-2015435513

PATIENT
  Age: 56 Year
  Sex: Female
  Weight: 71 kg

DRUGS (9)
  1. GABAPENTIN. [Concomitant]
     Active Substance: GABAPENTIN
     Dosage: 400 MG CAPSULES, 2 CAPSULES AT BEDTIME
  2. SIMVASTATIN. [Concomitant]
     Active Substance: SIMVASTATIN
     Indication: BLOOD CHOLESTEROL ABNORMAL
     Dosage: 40 MG, 1X/DAY AT BEDTIME
     Dates: start: 2001
  3. GABAPENTIN. [Concomitant]
     Active Substance: GABAPENTIN
     Indication: NEURALGIA
     Dosage: 100 MG, DAILY
     Dates: start: 2001
  4. CYCLOBENZAPRINE HYDROCHLORIDE. [Concomitant]
     Active Substance: CYCLOBENZAPRINE HYDROCHLORIDE
     Indication: PAIN
     Dosage: 10 MG TABLETS, 3 TABLETS AT BEDTIME
     Route: 048
     Dates: start: 200503
  5. GABAPENTIN. [Concomitant]
     Active Substance: GABAPENTIN
     Dosage: 300 MG, DAILY
  6. HYDROCO/ACETA [Concomitant]
     Indication: PAIN
     Dosage: [HYDROCODONE 5MG]/[ACETAMINOPHEN 325MG] 1-2 TABLETS TWICE DAILY AS NEEDED
     Route: 048
     Dates: start: 201503
  7. CELEBREX [Suspect]
     Active Substance: CELECOXIB
     Indication: PAIN
     Dosage: 200 MG, 1X/DAY AT BEDTIME
     Route: 048
     Dates: start: 2000
  8. BLACK COHOSH [Concomitant]
     Active Substance: BLACK COHOSH
     Indication: HOT FLUSH
     Dosage: 1080 MG DOSE, 2 CAPSULES ONCE AT NIGHT
     Route: 048
  9. OPANA [Concomitant]
     Active Substance: OXYMORPHONE HYDROCHLORIDE
     Indication: PAIN
     Dosage: 5 MG, 1X/DAY AS NEEDED
     Route: 048
     Dates: start: 200810

REACTIONS (1)
  - Rheumatoid arthritis [Not Recovered/Not Resolved]

NARRATIVE: CASE EVENT DATE: 2010
